FAERS Safety Report 14742055 (Version 1)
Quarter: 2018Q2

REPORT INFORMATION
  Report Type: Spontaneous
  Country: GB (occurrence: GB)
  Receive Date: 20180410
  Receipt Date: 20180410
  Transmission Date: 20180711
  Serious: Yes (Other)
  Sender: FDA-Public Use
  Company Number: GB-TEVA-2018-GB-880551

PATIENT
  Age: 63 Year
  Sex: Male

DRUGS (6)
  1. TOLTERODINE [Suspect]
     Active Substance: TOLTERODINE
     Indication: MICTURITION URGENCY
     Dosage: 6 MILLIGRAM DAILY;
     Route: 048
     Dates: start: 201703, end: 201710
  2. PSEUDOEPHEDRINE [Concomitant]
     Active Substance: PSEUDOEPHEDRINE
  3. FEXOFENADINE [Concomitant]
     Active Substance: FEXOFENADINE\FEXOFENADINE HYDROCHLORIDE
     Route: 065
  4. TOLTERODINE [Suspect]
     Active Substance: TOLTERODINE
     Route: 048
  5. FULTIUM-D3 [Concomitant]
     Active Substance: CHOLECALCIFEROL
     Route: 065
  6. LANSOPRAZOLE. [Concomitant]
     Active Substance: LANSOPRAZOLE

REACTIONS (2)
  - Myalgia [Recovered/Resolved]
  - Muscle spasms [Recovered/Resolved]

NARRATIVE: CASE EVENT DATE: 201708
